FAERS Safety Report 18326872 (Version 2)
Quarter: 2020Q3

REPORT INFORMATION
  Report Type: Spontaneous
  Country: AT (occurrence: AT)
  Receive Date: 20200930
  Receipt Date: 20200930
  Transmission Date: 20201103
  Serious: Yes (Other)
  Sender: FDA-Public Use
  Company Number: AT-ROCHE-2686558

PATIENT
  Age: 55 Year
  Sex: Male

DRUGS (2)
  1. ROACTEMRA [Suspect]
     Active Substance: TOCILIZUMAB
     Indication: PRODUCT USED FOR UNKNOWN INDICATION
     Dosage: STANDARD DOSE
     Route: 058
     Dates: start: 201707, end: 2017
  2. URBASON [Concomitant]
     Active Substance: METHYLPREDNISOLONE

REACTIONS (1)
  - Bursitis [Unknown]
